FAERS Safety Report 23552249 (Version 1)
Quarter: 2024Q1

REPORT INFORMATION
  Report Type: Spontaneous
  Country: BR (occurrence: BR)
  Receive Date: 20240222
  Receipt Date: 20240222
  Transmission Date: 20240410
  Serious: Yes (Other)
  Sender: FDA-Public Use
  Company Number: BR-BAXTER-2024BAX013155

PATIENT
  Age: 34 Year
  Sex: Female
  Weight: 60 kg

DRUGS (3)
  1. IRON [Suspect]
     Active Substance: IRON
     Indication: Supplementation therapy
     Dosage: 2 AMPOULES DILUTED IN 250 ML OF 0.9% SALINE SOLUTION, ONCE A WEEK
     Route: 042
     Dates: start: 20240214, end: 20240214
  2. IRON [Suspect]
     Active Substance: IRON
     Indication: Mineral supplementation
  3. SODIUM CHLORIDE [Suspect]
     Active Substance: SODIUM CHLORIDE
     Indication: Medication dilution
     Dosage: 250 ML OF 0.9% SALINE SOLUTION, ONCE A WEEK
     Route: 042
     Dates: start: 20240214, end: 20240214

REACTIONS (10)
  - Petechiae [Recovered/Resolved]
  - Papule [Recovered/Resolved]
  - Poor venous access [Unknown]
  - Hyperhidrosis [Recovered/Resolved]
  - Paraesthesia [Recovered/Resolved]
  - Back pain [Recovered/Resolved]
  - Syncope [Recovered/Resolved]
  - Nausea [Recovered/Resolved]
  - Syncope [Recovered/Resolved]
  - Hypotension [Recovered/Resolved]

NARRATIVE: CASE EVENT DATE: 20240214
